FAERS Safety Report 4638788-7 (Version None)
Quarter: 2005Q2

REPORT INFORMATION
  Report Type: 
  Country: None (occurrence: None)
  Receive Date: 20050418
  Receipt Date: 20050418
  Transmission Date: 20051028
  Serious: Yes (Death)
  Sender: FDA-Public Use
  Company Number: None

PATIENT
  Age: 13 Year
  Sex: Female
  Weight: 58 kg

DRUGS (4)
  1. ACETAMINOPHEN [Suspect]
     Indication: HEADACHE
     Dosage: 500MG  Q4HRS  ORAL
     Route: 048
     Dates: start: 20050211, end: 20050214
  2. ACETAMINOPHEN [Suspect]
     Indication: PAIN
     Dosage: 500MG  Q4HRS  ORAL
     Route: 048
     Dates: start: 20050211, end: 20050214
  3. TYLENOL COLD+SINUS [Suspect]
     Indication: NASOPHARYNGITIS
     Dosage: 1-2XDAY    ORAL
     Route: 048
     Dates: start: 20050211, end: 20050214
  4. TYLENOL COLD+SINUS [Suspect]
     Indication: PHARYNGOLARYNGEAL PAIN
     Dosage: 1-2XDAY    ORAL
     Route: 048
     Dates: start: 20050211, end: 20050214

REACTIONS (16)
  - ABDOMINAL PAIN [None]
  - BACTERIAL INFECTION [None]
  - BLOOD CULTURE POSITIVE [None]
  - BLOOD PRESSURE DECREASED [None]
  - BRAIN DEATH [None]
  - DRUG LEVEL INCREASED [None]
  - DYSPNOEA [None]
  - ENCEPHALOPATHY [None]
  - HEADACHE [None]
  - LIVER FUNCTION TEST ABNORMAL [None]
  - OLIGURIA [None]
  - PHARYNGOLARYNGEAL PAIN [None]
  - PUPIL FIXED [None]
  - RASH [None]
  - RENAL FAILURE [None]
  - VISION BLURRED [None]
